FAERS Safety Report 20990515 (Version 1)
Quarter: 2022Q2

REPORT INFORMATION
  Report Type: Other
  Country: US (occurrence: US)
  Receive Date: 20220622
  Receipt Date: 20220622
  Transmission Date: 20220721
  Serious: Yes (Hospitalization)
  Sender: FDA-Public Use
  Company Number: US-TOLMAR, INC.-21US026194

PATIENT
  Age: 79 Year
  Sex: Male
  Weight: 91 kg

DRUGS (11)
  1. ELIGARD [Suspect]
     Active Substance: LEUPROLIDE ACETATE
     Indication: Prostate cancer
     Dosage: 22.5 MILLIGRAM, Q 3 MONTH
     Route: 058
     Dates: start: 20181128
  2. ENZALUTAMIDE [Suspect]
     Active Substance: ENZALUTAMIDE
     Indication: Prostate cancer
     Dosage: UNK, QD
     Route: 048
     Dates: start: 20170117
  3. HYDROCHLOROTHIAZIDE\LISINOPRIL [Concomitant]
     Active Substance: HYDROCHLOROTHIAZIDE\LISINOPRIL
     Indication: Hypertension
     Dosage: UNK
     Dates: start: 2011
  4. METFORMIN [Concomitant]
     Active Substance: METFORMIN HYDROCHLORIDE
     Indication: Type 2 diabetes mellitus
     Dosage: UNK
     Dates: start: 20180501
  5. NAPROXEN [Concomitant]
     Active Substance: NAPROXEN
     Indication: Inflammation
     Dosage: UNK
     Dates: start: 2008
  6. NAPROXEN [Concomitant]
     Active Substance: NAPROXEN
     Indication: Oedema
  7. TOPAMAX [Concomitant]
     Active Substance: TOPIRAMATE
     Indication: Parkinson^s disease
     Dosage: UNK
     Dates: start: 2011
  8. TOPIRAMATE [Concomitant]
     Active Substance: TOPIRAMATE
     Indication: Parkinson^s disease
     Dosage: UNK
     Dates: start: 20170612
  9. ZOFRAN [Concomitant]
     Active Substance: ONDANSETRON HYDROCHLORIDE
     Indication: Nausea
     Dosage: UNK
     Dates: start: 20210202
  10. COVID-19 VACCINE [Concomitant]
     Indication: Immunisation
     Dosage: UNK
     Route: 030
     Dates: start: 20210212, end: 20210212
  11. COVID-19 VACCINE [Concomitant]
     Indication: Prophylaxis

REACTIONS (2)
  - Staphylococcal infection [Recovered/Resolved]
  - Post procedural infection [Recovered/Resolved]

NARRATIVE: CASE EVENT DATE: 20210216
